FAERS Safety Report 9912840 (Version 1)
Quarter: 2014Q1

REPORT INFORMATION
  Report Type: Spontaneous
  Country: IN (occurrence: None)
  Receive Date: 20140214
  Receipt Date: 20140214
  Transmission Date: 20141002
  Serious: Yes (Other)
  Sender: FDA-Public Use
  Company Number: 2014P1001101

PATIENT
  Age: 49 Year
  Sex: Male

DRUGS (2)
  1. IRINOTECAN [Suspect]
     Indication: SMALL CELL LUNG CANCER
  2. CISPLATIN [Suspect]
     Indication: SMALL CELL LUNG CANCER

REACTIONS (5)
  - Tuberculosis [None]
  - Metastases to pelvis [None]
  - Metastases to central nervous system [None]
  - Lung neoplasm malignant [None]
  - Malignant neoplasm progression [None]
